FAERS Safety Report 11874567 (Version 1)
Quarter: 2015Q4

REPORT INFORMATION
  Report Type: Spontaneous
  Country: US (occurrence: US)
  Receive Date: 20151229
  Receipt Date: 20151229
  Transmission Date: 20160305
  Serious: Yes (Other)
  Sender: FDA-Public Use
  Company Number: US-AMGEN-USASP2015139168

PATIENT
  Age: 48 Year
  Sex: Female

DRUGS (11)
  1. METHOTREXATE [Concomitant]
     Active Substance: METHOTREXATE
     Dosage: UNK
  2. TRAMADOL HCL [Concomitant]
     Active Substance: TRAMADOL HYDROCHLORIDE
     Dosage: UNK
  3. FOLIC ACID. [Concomitant]
     Active Substance: FOLIC ACID
     Dosage: UNK
  4. LEXAPRO [Concomitant]
     Active Substance: ESCITALOPRAM OXALATE
     Dosage: UNK
  5. MUCINEX [Concomitant]
     Active Substance: GUAIFENESIN
     Dosage: UNK
  6. WARFARIN SODIUM. [Concomitant]
     Active Substance: WARFARIN SODIUM
     Dosage: UNK
  7. ENBREL [Suspect]
     Active Substance: ETANERCEPT
     Indication: RHEUMATOID ARTHRITIS
     Dosage: 50 MG, QWK
     Route: 058
  8. HYDROCODONE [Concomitant]
     Active Substance: HYDROCODONE
     Dosage: UNK
  9. VICKS DAYQUIL [Concomitant]
     Active Substance: DEXTROMETHORPHAN HYDROBROMIDE\GUAIFENESIN
     Dosage: UNK
  10. FEMARA [Concomitant]
     Active Substance: LETROZOLE
     Dosage: UNK
  11. ACETAMINOPHEN. [Concomitant]
     Active Substance: ACETAMINOPHEN
     Dosage: UNK

REACTIONS (4)
  - Foot fracture [Not Recovered/Not Resolved]
  - Impaired healing [Not Recovered/Not Resolved]
  - Rheumatoid arthritis [Not Recovered/Not Resolved]
  - Fatigue [Unknown]
